FAERS Safety Report 8310247 (Version 2)
Quarter: 2012Q4

REPORT INFORMATION
  Report Type: 
  Country: US (occurrence: US)
  Receive Date: 20111223
  Receipt Date: 20121221
  Transmission Date: 20130627
  Serious: Yes (Other)
  Sender: FDA-Public Use
  Company Number: US-ROCHE-1024470

PATIENT
  Age: 41 None
  Sex: Female
  Weight: 36.32 kg

DRUGS (2)
  1. ACCUTANE [Suspect]
     Indication: ACNE
     Route: 065
     Dates: start: 198601
  2. ACCUTANE [Suspect]
     Route: 065
     Dates: start: 199206

REACTIONS (6)
  - Injury [Unknown]
  - Crohn^s disease [Unknown]
  - Colitis ulcerative [Unknown]
  - Inflammatory bowel disease [Unknown]
  - Depression [Not Recovered/Not Resolved]
  - Irritable bowel syndrome [Unknown]
